FAERS Safety Report 6484406-5 (Version None)
Quarter: 2009Q4

REPORT INFORMATION
  Report Type: 
  Country: None (occurrence: None)
  Receive Date: 20091209
  Receipt Date: 20091202
  Transmission Date: 20100525
  Serious: Yes (Death, Hospitalization)
  Sender: FDA-Public Use
  Company Number: US-GILEAD-2009-0025461

PATIENT
  Sex: Female
  Weight: 60.382 kg

DRUGS (15)
  1. LETAIRIS [Suspect]
     Indication: PULMONARY ARTERIAL HYPERTENSION
     Route: 048
     Dates: start: 20091028
  2. COUMADIN [Concomitant]
  3. FUROSEMIDE [Concomitant]
  4. NOVOLIN [Concomitant]
  5. BACTRIM DS [Concomitant]
  6. CELLCEPT [Concomitant]
  7. METFORMIN HCL [Concomitant]
  8. PREDNISONE [Concomitant]
  9. NEXIUM [Concomitant]
  10. FERROUS SULFATE TAB [Concomitant]
  11. COLACE [Concomitant]
  12. CALCIUM [Concomitant]
  13. POTASSIUM CHLORIDE [Concomitant]
  14. CELEXA [Concomitant]
  15. SENNA [Concomitant]

REACTIONS (2)
  - RESPIRATORY DISTRESS [None]
  - RESPIRATORY FAILURE [None]
